FAERS Safety Report 24834197 (Version 2)
Quarter: 2025Q1

REPORT INFORMATION
  Report Type: Spontaneous
  Country: DE (occurrence: DE)
  Receive Date: 20250113
  Receipt Date: 20250211
  Transmission Date: 20250409
  Serious: Yes (Other)
  Sender: BOEHRINGER INGELHEIM
  Company Number: DE-BoehringerIngelheim-2025-BI-001153

PATIENT
  Age: 49 Year
  Sex: Male

DRUGS (2)
  1. AFATINIB [Suspect]
     Active Substance: AFATINIB
     Indication: Non-small cell lung cancer
  2. AFATINIB [Suspect]
     Active Substance: AFATINIB
     Dates: start: 201701, end: 201911

REACTIONS (8)
  - Lung carcinoma cell type unspecified recurrent [Unknown]
  - Lymphadenopathy mediastinal [Unknown]
  - Pleural effusion [Unknown]
  - Hilar lymphadenopathy [Unknown]
  - Disease progression [Unknown]
  - Lung neoplasm malignant [Unknown]
  - Metastases to lymph nodes [Unknown]
  - Metastases to bone [Unknown]

NARRATIVE: CASE EVENT DATE: 20170101
